FAERS Safety Report 8757725 (Version 2)
Quarter: 2012Q4

REPORT INFORMATION
  Report Type: 
  Country: US (occurrence: US)
  Receive Date: 20120828
  Receipt Date: 20121012
  Transmission Date: 20130627
  Serious: Yes (Life-Threatening, Hospitalization, Other)
  Sender: FDA-Public Use
  Company Number: US-ASTRAZENECA-2012SE60598

PATIENT
  Age: 51 Year
  Sex: Male
  Weight: 88.9 kg

DRUGS (6)
  1. NEXIUM [Suspect]
     Indication: GASTROOESOPHAGEAL REFLUX DISEASE
     Route: 048
     Dates: start: 20110523
  2. CRESTOR [Concomitant]
     Route: 048
  3. XANAX [Concomitant]
     Indication: ANXIETY
     Route: 048
     Dates: start: 20110508
  4. FLOMARE [Concomitant]
     Indication: MULTIPLE ALLERGIES
     Dosage: 2 P DALIY
  5. TYLENOL ARTHRITIS [Concomitant]
     Indication: PAIN
     Route: 048
  6. FLEXERIL [Concomitant]
     Indication: MUSCLE SPASMS
     Route: 048

REACTIONS (1)
  - Myocardial infarction [Recovering/Resolving]
